FAERS Safety Report 8118971-9 (Version None)
Quarter: 2012Q1

REPORT INFORMATION
  Report Type: 
  Country: None (occurrence: None)
  Receive Date: 20120207
  Receipt Date: 20120126
  Transmission Date: 20120608
  Serious: Yes (Hospitalization)
  Sender: FDA-Public Use
  Company Number: FR-ROCHE-1035215

PATIENT
  Age: 33 Year
  Sex: Female

DRUGS (5)
  1. SINGULAIR [Concomitant]
  2. XOLAIR [Suspect]
     Indication: ASTHMA
     Route: 030
     Dates: start: 20110101, end: 20120118
  3. EBASTINE [Concomitant]
  4. FLUTICASONE PROPIONATE/SALMETEROL [Concomitant]
  5. VENTOLIN [Concomitant]

REACTIONS (2)
  - SENSORY DISTURBANCE [None]
  - INCORRECT ROUTE OF DRUG ADMINISTRATION [None]
